FAERS Safety Report 20696738 (Version 1)
Quarter: 2022Q2

REPORT INFORMATION
  Report Type: Report from Study
  Country: GB (occurrence: GB)
  Receive Date: 20220411
  Receipt Date: 20220411
  Transmission Date: 20220721
  Serious: Yes (Other)
  Sender: FDA-Public Use
  Company Number: GB-JAZZ-2022-GB-011155

PATIENT
  Age: 55 Year
  Sex: Female

DRUGS (1)
  1. VYXEOS [Suspect]
     Active Substance: CYTARABINE\DAUNORUBICIN
     Indication: Product used for unknown indication
     Dosage: UNK

REACTIONS (5)
  - Pericarditis [Unknown]
  - Myocarditis [Unknown]
  - Endocarditis [Unknown]
  - Cardiomyopathy [Unknown]
  - Arrhythmia [Unknown]

NARRATIVE: CASE EVENT DATE: 20210409
